FAERS Safety Report 19120528 (Version 1)
Quarter: 2021Q2

REPORT INFORMATION
  Report Type: Spontaneous
  Country: US (occurrence: US)
  Receive Date: 20210409
  Receipt Date: 20210409
  Transmission Date: 20210717
  Serious: Yes (Hospitalization)
  Sender: FDA-Public Use
  Company Number: None

PATIENT
  Age: 65 Year
  Sex: Female

DRUGS (12)
  1. BETHKIS [Suspect]
     Active Substance: TOBRAMYCIN
     Indication: BRONCHIECTASIS
     Dosage: ?          OTHER ROUTE:INH?1MTH ON ?1MTH OFF?
     Dates: start: 20200619
  2. ALENDRONATE [Concomitant]
     Active Substance: ALENDRONATE SODIUM
  3. TYLENOL [Concomitant]
     Active Substance: ACETAMINOPHEN
  4. MOMETASONE [Concomitant]
     Active Substance: MOMETASONE
  5. FLUTICASONE SPR [Concomitant]
  6. COMBIVENT [Concomitant]
     Active Substance: ALBUTEROL SULFATE\IPRATROPIUM BROMIDE
  7. DICYCLOMINE [Concomitant]
     Active Substance: DICYCLOMINE HYDROCHLORIDE
  8. MOXIFLOXACIN. [Concomitant]
     Active Substance: MOXIFLOXACIN
  9. VIRTUSSIN AC [Concomitant]
     Active Substance: CODEINE PHOSPHATE\GUAIFENESIN
  10. CEFUROXIME. [Concomitant]
     Active Substance: CEFUROXIME
  11. VALACYCLOVIR [Concomitant]
     Active Substance: VALACYCLOVIR HYDROCHLORIDE
  12. ATROVENT HFA [Concomitant]
     Active Substance: IPRATROPIUM BROMIDE

REACTIONS (2)
  - Vaccination complication [None]
  - Therapy interrupted [None]

NARRATIVE: CASE EVENT DATE: 20210321
